FAERS Safety Report 6114554-0 (Version None)
Quarter: 2009Q1

REPORT INFORMATION
  Report Type: 
  Country: None (occurrence: None)
  Receive Date: 20090313
  Receipt Date: 20090210
  Transmission Date: 20090719
  Serious: No
  Sender: FDA-Public Use
  Company Number: US-BAYER-200913149NA

PATIENT
  Age: 37 Year
  Sex: Female
  Weight: 62 kg

DRUGS (2)
  1. YASMIN [Suspect]
     Route: 048
  2. ALLEGRA [Concomitant]

REACTIONS (2)
  - GENITAL RASH [None]
  - RASH [None]
